FAERS Safety Report 7941358-6 (Version None)
Quarter: 2011Q4

REPORT INFORMATION
  Report Type: 
  Country: None (occurrence: None)
  Receive Date: 20111122
  Receipt Date: 20111122
  Transmission Date: 20120403
  Serious: No
  Sender: FDA-Public Use
  Company Number: None

PATIENT
  Sex: Male
  Weight: 115.6672 kg

DRUGS (3)
  1. CYMBALTA [Suspect]
     Indication: OBSTRUCTION
     Dosage: 60MG 1X A DAY MOUTH
     Route: 048
     Dates: start: 20091201, end: 20111031
  2. CYMBALTA [Suspect]
     Indication: NERVE INJURY
     Dosage: 60MG 1X A DAY MOUTH
     Route: 048
     Dates: start: 20091201, end: 20111031
  3. CYMBALTA [Suspect]
     Indication: BACK PAIN
     Dosage: 60MG 1X A DAY MOUTH
     Route: 048
     Dates: start: 20091201, end: 20111031

REACTIONS (9)
  - INSOMNIA [None]
  - SELF INJURIOUS BEHAVIOUR [None]
  - MUSCLE TWITCHING [None]
  - PARAESTHESIA [None]
  - CONFUSIONAL STATE [None]
  - HEADACHE [None]
  - ANGER [None]
  - CRYING [None]
  - BALANCE DISORDER [None]
